FAERS Safety Report 20901327 (Version 1)
Quarter: 2022Q2

REPORT INFORMATION
  Report Type: Spontaneous
  Country: US (occurrence: None)
  Receive Date: 20220601
  Receipt Date: 20220601
  Transmission Date: 20220721
  Serious: Yes (Other)
  Sender: FDA-Public Use
  Company Number: None

PATIENT
  Age: 33 Year
  Sex: Female
  Weight: 153 kg

DRUGS (4)
  1. PAXLOVID [Suspect]
     Active Substance: NIRMATRELVIR\RITONAVIR
     Indication: COVID-19
     Dosage: FREQUENCY : TWICE A DAY;?
     Route: 048
     Dates: start: 20220526, end: 20220530
  2. XARELTO [Concomitant]
     Active Substance: RIVAROXABAN
  3. DILTIAZEM [Concomitant]
     Active Substance: DILTIAZEM
  4. VITAMIN B COMPLEX [Concomitant]
     Active Substance: CYANOCOBALAMIN\DEXPANTHENOL\NIACINAMIDE\PYRIDOXINE HYDROCHLORIDE\RIBOFLAVIN 5^-PHOSPHATE SODIUM\THIA

REACTIONS (9)
  - Drug interaction [None]
  - Abdominal pain upper [None]
  - Nausea [None]
  - Malaise [None]
  - Diarrhoea [None]
  - Haematemesis [None]
  - Product use complaint [None]
  - Product label confusion [None]
  - Condition aggravated [None]

NARRATIVE: CASE EVENT DATE: 20220530
